FAERS Safety Report 11949019 (Version 1)
Quarter: 2016Q1

REPORT INFORMATION
  Report Type: Report from Study
  Country: US (occurrence: US)
  Receive Date: 20160125
  Receipt Date: 20160125
  Transmission Date: 20160526
  Serious: No
  Sender: FDA-Public Use
  Company Number: US-ABBVIE-15K-163-1331678-00

PATIENT
  Age: 72 Year
  Sex: Female
  Weight: 62.65 kg

DRUGS (1)
  1. HUMIRA [Suspect]
     Active Substance: ADALIMUMAB
     Indication: ANKYLOSING SPONDYLITIS
     Route: 065
     Dates: start: 20141216

REACTIONS (9)
  - Influenza [Not Recovered/Not Resolved]
  - Dizziness [Recovered/Resolved]
  - Nasal congestion [Not Recovered/Not Resolved]
  - Contusion [Not Recovered/Not Resolved]
  - Bacterial infection [Not Recovered/Not Resolved]
  - Myalgia [Not Recovered/Not Resolved]
  - Fall [Recovering/Resolving]
  - Rib fracture [Not Recovered/Not Resolved]
  - Sinus congestion [Not Recovered/Not Resolved]

NARRATIVE: CASE EVENT DATE: 201501
